FAERS Safety Report 6359989-6 (Version None)
Quarter: 2009Q3

REPORT INFORMATION
  Report Type: 
  Country: None (occurrence: None)
  Receive Date: 20090917
  Receipt Date: 20090914
  Transmission Date: 20100115
  Serious: Yes (Hospitalization, Other)
  Sender: FDA-Public Use
  Company Number: US-AMGEN-US364542

PATIENT
  Sex: Female
  Weight: 92 kg

DRUGS (8)
  1. NPLATE [Suspect]
     Dates: end: 20090910
  2. PREDNISONE [Concomitant]
  3. ONDANSETRON [Concomitant]
  4. TPN [Concomitant]
  5. INSULIN [Concomitant]
  6. SENNA [Concomitant]
  7. LEVOTHYROXINE SODIUM [Concomitant]
  8. ACYCLOVIR [Concomitant]

REACTIONS (2)
  - COLON CANCER [None]
  - MESENTERIC VEIN THROMBOSIS [None]
